FAERS Safety Report 21787775 (Version 4)
Quarter: 2023Q2

REPORT INFORMATION
  Report Type: Spontaneous
  Country: US (occurrence: US)
  Receive Date: 20221228
  Receipt Date: 20230426
  Transmission Date: 20230722
  Serious: No
  Sender: FDA-Public Use
  Company Number: US-BRISTOL-MYERS SQUIBB COMPANY-2022-159364

PATIENT
  Age: 88 Year
  Sex: Female

DRUGS (1)
  1. REVLIMID [Suspect]
     Active Substance: LENALIDOMIDE
     Indication: Myelodysplastic syndrome
     Dosage: FREQ: TAKE 1 CAPSULE (10 MG) BY MOUTH DAILY FOR 21 DAYS
     Route: 048
     Dates: start: 20220819

REACTIONS (4)
  - Nasopharyngitis [Unknown]
  - Fall [Unknown]
  - Diarrhoea [Unknown]
  - Fatigue [Unknown]
